FAERS Safety Report 14523397 (Version 1)
Quarter: 2018Q1

REPORT INFORMATION
  Report Type: Report from Study
  Country: US (occurrence: US)
  Receive Date: 20180212
  Receipt Date: 20180212
  Transmission Date: 20180509
  Serious: No
  Sender: FDA-Public Use
  Company Number: PHEH2018US004534

PATIENT
  Sex: Female

DRUGS (1)
  1. COSENTYX [Suspect]
     Active Substance: SECUKINUMAB
     Indication: PSORIASIS
     Dosage: 300 MG, QMO
     Route: 058

REACTIONS (11)
  - Feeling abnormal [Unknown]
  - Rhinorrhoea [Unknown]
  - Drug ineffective [Unknown]
  - Injection site mass [Unknown]
  - Psoriasis [Unknown]
  - Product storage error [Unknown]
  - Movement disorder [Unknown]
  - Nasal congestion [Unknown]
  - Skin discolouration [Unknown]
  - Aphonia [Unknown]
  - Expired product administered [Unknown]
